FAERS Safety Report 4870081-X (Version None)
Quarter: 2005Q4

REPORT INFORMATION
  Report Type: 
  Country: None (occurrence: None)
  Receive Date: 20051223
  Receipt Date: 20050901
  Transmission Date: 20060501
  Serious: Yes (Hospitalization, Other)
  Sender: FDA-Public Use
  Company Number: 2005BI006158

PATIENT
  Age: 54 Year
  Sex: Female

DRUGS (1)
  1. AVONEX [Suspect]
     Indication: MULTIPLE SCLEROSIS
     Dosage: 30 UG; QW; IM
     Route: 030
     Dates: start: 20020405

REACTIONS (5)
  - BONE DISORDER [None]
  - DIALYSIS [None]
  - HAEMORRHAGE [None]
  - MALIGNANT MELANOMA [None]
  - RENAL FAILURE [None]
